FAERS Safety Report 4915157-3 (Version None)
Quarter: 2006Q1

REPORT INFORMATION
  Report Type: 
  Country: None (occurrence: None)
  Receive Date: 20060216
  Receipt Date: 20060216
  Transmission Date: 20060701
  Serious: Yes (Hospitalization)
  Sender: FDA-Public Use
  Company Number: None

PATIENT
  Sex: Male
  Weight: 102.0593 kg

DRUGS (3)
  1. TRAMADOL HCL [Suspect]
     Indication: PAIN
     Dosage: UNKNWN PO
     Route: 048
     Dates: start: 20050903
  2. TOPROL [Concomitant]
  3. ZOCOR [Concomitant]

REACTIONS (1)
  - PHARYNGEAL OEDEMA [None]
